APPROVED DRUG PRODUCT: IMIPRAMINE HYDROCHLORIDE
Active Ingredient: IMIPRAMINE HYDROCHLORIDE
Strength: 50MG
Dosage Form/Route: TABLET;ORAL
Application: A040903 | Product #003 | TE Code: AB
Applicant: LEADING PHARMA LLC
Approved: Oct 24, 2012 | RLD: No | RS: Yes | Type: RX